FAERS Safety Report 14106656 (Version 2)
Quarter: 2017Q4

REPORT INFORMATION
  Report Type: Spontaneous
  Country: GB (occurrence: GB)
  Receive Date: 20171019
  Receipt Date: 20171031
  Transmission Date: 20180321
  Serious: Yes (Other)
  Sender: FDA-Public Use
  Company Number: GB-ABBVIE-17P-167-2135938-00

PATIENT
  Sex: Female

DRUGS (4)
  1. EPILIM [Suspect]
     Active Substance: VALPROATE SODIUM
     Indication: GASTRIC PH
     Route: 048
     Dates: start: 19971001
  2. EPILIM [Suspect]
     Active Substance: VALPROATE SODIUM
     Route: 065
     Dates: start: 2008
  3. EPILIM [Suspect]
     Active Substance: VALPROATE SODIUM
     Route: 065
     Dates: start: 2015
  4. ABILIFY [Concomitant]
     Active Substance: ARIPIPRAZOLE
     Indication: PRODUCT USED FOR UNKNOWN INDICATION
     Route: 065
     Dates: start: 2008

REACTIONS (9)
  - Weight increased [Not Recovered/Not Resolved]
  - Hair disorder [Unknown]
  - Suicidal ideation [Unknown]
  - Infertility [Unknown]
  - Pollakiuria [Not Recovered/Not Resolved]
  - Gingival bleeding [Not Recovered/Not Resolved]
  - Hyperaesthesia [Not Recovered/Not Resolved]
  - Abdominal discomfort [Not Recovered/Not Resolved]
  - Menstruation irregular [Not Recovered/Not Resolved]
